FAERS Safety Report 5404367-7 (Version None)
Quarter: 2007Q3

REPORT INFORMATION
  Report Type: 
  Country: None (occurrence: None)
  Receive Date: 20070802
  Receipt Date: 20070725
  Transmission Date: 20080115
  Serious: Yes (Other)
  Sender: FDA-Public Use
  Company Number: GB-PFIZER INC-2007023139

PATIENT
  Sex: Female
  Weight: 2.3 kg

DRUGS (1)
  1. FRAGMIN [Suspect]
     Indication: PREOPERATIVE CARE
     Dosage: TEXT:7500 UNITS
     Route: 064
     Dates: start: 20070205, end: 20070301

REACTIONS (2)
  - DRUG EXPOSURE DURING PREGNANCY [None]
  - FOETAL MOVEMENTS DECREASED [None]
